FAERS Safety Report 17490250 (Version 1)
Quarter: 2020Q1

REPORT INFORMATION
  Report Type: Spontaneous
  Country: US (occurrence: US)
  Receive Date: 20200303
  Receipt Date: 20200303
  Transmission Date: 20200409
  Serious: Yes (Other)
  Sender: FDA-Public Use
  Company Number: US-AKORN PHARMACEUTICALS-2019AKN00188

PATIENT
  Age: 36 Year
  Sex: Male
  Weight: 90 kg

DRUGS (2)
  1. MYORISAN [Suspect]
     Active Substance: ISOTRETINOIN
     Indication: ACNE CONGLOBATA
     Dosage: 40 MG, 1X/DAY
     Route: 048
     Dates: start: 20181207, end: 201901
  2. T-GEL SHAMPOO [Concomitant]

REACTIONS (12)
  - Abdominal pain [Recovered/Resolved]
  - Hepatic steatosis [Unknown]
  - Alopecia scarring [Unknown]
  - Off label use [Recovered/Resolved]
  - Aspartate aminotransferase increased [Recovering/Resolving]
  - Dry skin [Unknown]
  - Alanine aminotransferase increased [Not Recovered/Not Resolved]
  - Epistaxis [Recovered/Resolved]
  - Blood triglycerides increased [Recovering/Resolving]
  - Product use in unapproved indication [Recovered/Resolved]
  - Rash [Unknown]
  - Lip dry [Unknown]

NARRATIVE: CASE EVENT DATE: 20181207
